FAERS Safety Report 6992718-1 (Version None)
Quarter: 2010Q3

REPORT INFORMATION
  Report Type: 
  Country: None (occurrence: None)
  Receive Date: 20100917
  Receipt Date: 20100909
  Transmission Date: 20110219
  Serious: Yes (Other)
  Sender: FDA-Public Use
  Company Number: US-BAXTER-2010BH023505

PATIENT
  Age: 46 Year
  Sex: Male

DRUGS (1)
  1. DIAZEPAM [Suspect]
     Indication: ALCOHOL WITHDRAWAL SYNDROME
     Route: 042

REACTIONS (1)
  - DRUG TOXICITY [None]
